FAERS Safety Report 4429397-3 (Version None)
Quarter: 2004Q3

REPORT INFORMATION
  Report Type: 
  Country: None (occurrence: None)
  Receive Date: 20040816
  Receipt Date: 20040806
  Transmission Date: 20050211
  Serious: Yes (Other)
  Sender: FDA-Public Use
  Company Number: 2004-08-0382

PATIENT
  Age: 36 Year
  Sex: Male

DRUGS (8)
  1. TEMODAL [Suspect]
     Indication: OLIGODENDROGLIOMA
     Dosage: 400 MG QD ORAL
     Route: 048
     Dates: start: 20040628, end: 20040702
  2. TEGRETOL [Suspect]
     Indication: CONVULSION
     Dosage: 1200 MG QD ORAL
     Route: 048
  3. CELEBREX [Suspect]
     Indication: PAIN
     Dosage: 100 MG ORAL
     Route: 048
     Dates: start: 20040629, end: 20040705
  4. NEXIUM [Suspect]
     Indication: PROPHYLAXIS AGAINST GASTROINTESTINAL ULCER
     Dosage: 40 MG ORAL
     Route: 048
     Dates: end: 20040706
  5. SINTROM [Suspect]
     Indication: PULMONARY EMBOLISM
     Dosage: 5-6 MG QD ORAL
     Route: 048
     Dates: start: 20040701
  6. FRAXIPARINE INJECTABLE [Suspect]
     Indication: THROMBOSIS PROPHYLAXIS
     Dosage: 0.16 ML QD SUBCUTANEOUS
     Route: 058
  7. TRAMAL SYRUP [Concomitant]
  8. CALCIUM/VITAMIN D TABLETS [Concomitant]

REACTIONS (4)
  - DRUG INEFFECTIVE [None]
  - DRUG INTERACTION [None]
  - HEPATOCELLULAR DAMAGE [None]
  - PULMONARY EMBOLISM [None]
